FAERS Safety Report 12316627 (Version 1)
Quarter: 2016Q2

REPORT INFORMATION
  Report Type: Spontaneous
  Country: IT (occurrence: IT)
  Receive Date: 20160429
  Receipt Date: 20160429
  Transmission Date: 20160815
  Serious: Yes (Other)
  Sender: FDA-Public Use
  Company Number: IT-ROCHE-1748863

PATIENT
  Sex: Male
  Weight: 80 kg

DRUGS (2)
  1. SOFOSBUVIR [Interacting]
     Active Substance: SOFOSBUVIR
     Indication: CHRONIC HEPATITIS
     Route: 048
     Dates: start: 20160222, end: 20160301
  2. RIBAVIRIN. [Suspect]
     Active Substance: RIBAVIRIN
     Indication: CHRONIC HEPATITIS
     Route: 048
     Dates: start: 20160222, end: 20160301

REACTIONS (2)
  - Psoriasis [Unknown]
  - Drug interaction [Unknown]
